FAERS Safety Report 7321738-2 (Version None)
Quarter: 2011Q1

REPORT INFORMATION
  Report Type: 
  Country: None (occurrence: None)
  Receive Date: 20110228
  Receipt Date: 20110221
  Transmission Date: 20110831
  Serious: Yes (Hospitalization)
  Sender: FDA-Public Use
  Company Number: CHPA2011US03045

PATIENT
  Age: 9 Year
  Sex: Male
  Weight: 24.036 kg

DRUGS (5)
  1. TRIAMINIC NIGHT TIME COLD + COUGH [Suspect]
     Indication: RHINORRHOEA
     Dosage: 1 DF, QD
     Route: 048
     Dates: start: 20110218, end: 20110219
  2. TRIAMINIC NIGHT TIME COLD + COUGH [Suspect]
     Indication: COUGH
     Dosage: 1 DF, QD
     Route: 048
     Dates: start: 20110216, end: 20110216
  3. TRIAMINIC DAY TIME COLD + COUGH [Suspect]
     Indication: COUGH
     Dosage: 2 DF, QD
     Route: 048
     Dates: start: 20110216, end: 20110218
  4. TRIAMINIC NIGHT TIME COLD + COUGH [Suspect]
     Indication: NASAL CONGESTION
  5. TRIAMINIC DAY TIME COLD + COUGH [Suspect]
     Indication: NASAL CONGESTION

REACTIONS (3)
  - CONTUSION [None]
  - NAUSEA [None]
  - PLATELET COUNT DECREASED [None]
